FAERS Safety Report 7653739-9 (Version None)
Quarter: 2011Q3

REPORT INFORMATION
  Report Type: 
  Country: None (occurrence: None)
  Receive Date: 20110803
  Receipt Date: 20110725
  Transmission Date: 20111222
  Serious: Yes (Hospitalization)
  Sender: FDA-Public Use
  Company Number: US-GLAXOSMITHKLINE-A0931779A

PATIENT
  Age: 41 Year
  Sex: Male
  Weight: 91.9 kg

DRUGS (4)
  1. SUDAFED 12 HOUR [Concomitant]
     Indication: NASOPHARYNGITIS
     Dosage: 3MG PER DAY
     Route: 048
     Dates: start: 20110313
  2. WELLBUTRIN [Suspect]
  3. INVESTIGATIONAL DRUG [Suspect]
     Indication: MAJOR DEPRESSION
     Route: 048
     Dates: start: 20110112
  4. VITAMIN B-12 [Concomitant]
     Dosage: 1UNIT PER DAY
     Route: 048
     Dates: start: 20110131

REACTIONS (2)
  - SUICIDE ATTEMPT [None]
  - OVERDOSE [None]
